FAERS Safety Report 6254092-8 (Version None)
Quarter: 2009Q3

REPORT INFORMATION
  Report Type: 
  Country: None (occurrence: None)
  Receive Date: 20090702
  Receipt Date: 20090624
  Transmission Date: 20100115
  Serious: Yes (Other)
  Sender: FDA-Public Use
  Company Number: GB-JNJFOC-20090505721

PATIENT
  Sex: Male
  Weight: 92 kg

DRUGS (13)
  1. REMICADE [Suspect]
     Indication: RHEUMATOID ARTHRITIS
     Dosage: DOSE: ^300^
     Route: 042
  2. MINOCYCLINE HCL [Concomitant]
  3. FOLIC ACID [Concomitant]
  4. PRILOSEC [Concomitant]
  5. SOLPADOL [Concomitant]
  6. PARACETAMOL [Concomitant]
     Route: 048
  7. PRAVASTATIN [Concomitant]
     Route: 048
  8. WARFARIN [Concomitant]
     Route: 048
  9. BISOPROLOL [Concomitant]
     Route: 048
  10. ADCAL D3 [Concomitant]
     Route: 048
  11. DIGOXIN [Concomitant]
     Route: 048
  12. RISEDRONATE SODIUM [Concomitant]
     Route: 048
  13. PREDNISOLONE [Concomitant]
     Route: 048

REACTIONS (2)
  - PLEURAL EFFUSION [None]
  - RECTAL CANCER [None]
